FAERS Safety Report 4683680-5 (Version None)
Quarter: 2005Q2

REPORT INFORMATION
  Report Type: 
  Country: None (occurrence: None)
  Receive Date: 20050607
  Receipt Date: 20050527
  Transmission Date: 20051028
  Serious: Yes (Other)
  Sender: FDA-Public Use
  Company Number: 200514584US

PATIENT
  Age: 53 Year
  Sex: Male

DRUGS (3)
  1. LOVENOX [Suspect]
     Indication: PULMONARY EMBOLISM
  2. BECLOVENT [Concomitant]
     Dosage: DOSE: NOT PROVIDED
  3. ANALGESICS [Concomitant]
     Dosage: DOSE: NOT PROVIDED

REACTIONS (4)
  - CEREBROVASCULAR ACCIDENT [None]
  - DIPLOPIA [None]
  - HYPOKINESIA [None]
  - MYOCARDIAL INFARCTION [None]
